FAERS Safety Report 10337866 (Version 1)
Quarter: 2014Q3

REPORT INFORMATION
  Report Type: Spontaneous
  Country: US (occurrence: US)
  Receive Date: 20140724
  Receipt Date: 20140724
  Transmission Date: 20150326
  Serious: No
  Sender: FDA-Public Use
  Company Number: US-UNITED THERAPEUTICS-UTC-047475

PATIENT
  Age: 67 Year
  Sex: Male
  Weight: 78.47 kg

DRUGS (1)
  1. REMODULIN [Suspect]
     Active Substance: TREPROSTINIL
     Dosage: 0.04 UG/KG/MIN
     Route: 041
     Dates: start: 20131217

REACTIONS (3)
  - Drug dose omission [Unknown]
  - Fatigue [Unknown]
  - Device issue [Unknown]

NARRATIVE: CASE EVENT DATE: 20140409
